FAERS Safety Report 11722781 (Version 1)
Quarter: 2015Q4

REPORT INFORMATION
  Report Type: Spontaneous
  Country: US (occurrence: None)
  Receive Date: 20151110
  Receipt Date: 20151110
  Transmission Date: 20160304
  Serious: No
  Sender: FDA-Public Use
  Company Number: None

PATIENT
  Age: 59 Year
  Sex: Female
  Weight: 53.52 kg

DRUGS (7)
  1. VIT. D, FOLIC ACID, VIT. B - COMPLEX [Concomitant]
     Active Substance: FOLIC ACID\VITAMINS
  2. FLAXSEED [Concomitant]
     Active Substance: FLAX SEED
  3. VITAMIN B COMPLEX [Concomitant]
     Active Substance: CYANOCOBALAMIN\DEXPANTHENOL\NIACINAMIDE\PYRIDOXINE HYDROCHLORIDE\RIBOFLAVIN 5^-PHOSPHATE SODIUM\THIAMINE HYDROCHLORIDE\VITAMIN B COMPLEX
  4. OSPHENA [Suspect]
     Active Substance: OSPEMIFENE
     Indication: VULVOVAGINAL DRYNESS
     Dosage: 60MG TOO STRONG MD RECOMMENDED 30 MG TO 25 ??30MG 1/2 TAB OF 60MG ONCE Q AM
     Route: 048
     Dates: start: 20150915, end: 20151024
  5. OSPHENA [Suspect]
     Active Substance: OSPEMIFENE
     Indication: MENOPAUSAL SYMPTOMS
     Dosage: 60MG TOO STRONG MD RECOMMENDED 30 MG TO 25 ??30MG 1/2 TAB OF 60MG ONCE Q AM
     Route: 048
     Dates: start: 20150915, end: 20151024
  6. OSPHENA [Suspect]
     Active Substance: OSPEMIFENE
     Indication: ATROPHIC VULVOVAGINITIS
     Dosage: 60MG TOO STRONG MD RECOMMENDED 30 MG TO 25 ??30MG 1/2 TAB OF 60MG ONCE Q AM
     Route: 048
     Dates: start: 20150915, end: 20151024
  7. VITAMIN C [Concomitant]
     Active Substance: ASCORBIC ACID

REACTIONS (12)
  - Pruritus [None]
  - Burning sensation [None]
  - Rash pustular [None]
  - Sebaceous gland disorder [None]
  - Skin exfoliation [None]
  - Urticaria [None]
  - Ear infection [None]
  - Flushing [None]
  - Hyperhidrosis [None]
  - Erythema [None]
  - Alopecia [None]
  - Dry skin [None]

NARRATIVE: CASE EVENT DATE: 20151024
